FAERS Safety Report 7200178-0 (Version None)
Quarter: 2010Q4

REPORT INFORMATION
  Report Type: 
  Country: None (occurrence: None)
  Receive Date: 20101214
  Receipt Date: 20101206
  Transmission Date: 20110411
  Serious: Yes (Hospitalization)
  Sender: FDA-Public Use
  Company Number: 2010S1000392

PATIENT
  Age: 70 Year
  Sex: Female

DRUGS (13)
  1. DARVOCET-N 100 [Suspect]
     Indication: PAIN
     Dosage: PO
     Route: 048
     Dates: start: 19940101, end: 20101202
  2. LIPITOR [Concomitant]
  3. TRICOR [Concomitant]
  4. IMOUR [Concomitant]
  5. LEVOTHYROXINE [Concomitant]
  6. PLAVIX [Concomitant]
  7. TRIAMTERENE [Concomitant]
  8. SINGULAIR [Concomitant]
  9. FAMOTIDINF [Concomitant]
  10. ASPIRIN [Concomitant]
  11. LORTAB [Concomitant]
  12. SPIRIVA [Concomitant]
  13. XANAX [Concomitant]

REACTIONS (5)
  - CHEST PAIN [None]
  - MUSCULOSKELETAL PAIN [None]
  - NECK PAIN [None]
  - NODULE [None]
  - STENT PLACEMENT [None]
